FAERS Safety Report 9642983 (Version 1)
Quarter: 2013Q4

REPORT INFORMATION
  Report Type: Spontaneous
  Country: US (occurrence: US)
  Receive Date: 20131024
  Receipt Date: 20131024
  Transmission Date: 20140711
  Serious: No
  Sender: FDA-Public Use
  Company Number: US-MYLANLABS-2013S1016200

PATIENT
  Age: 50 Year
  Sex: Female
  Weight: 52.16 kg

DRUGS (2)
  1. DIAZEPAM [Suspect]
     Indication: INSOMNIA
     Route: 048
     Dates: start: 201208
  2. DIAZEPAM [Suspect]
     Indication: OFF LABEL USE
     Route: 048
     Dates: start: 201208

REACTIONS (3)
  - Drug ineffective for unapproved indication [Not Recovered/Not Resolved]
  - Poor quality sleep [Not Recovered/Not Resolved]
  - Pain [Not Recovered/Not Resolved]
